FAERS Safety Report 9838933 (Version 1)
Quarter: 2014Q1

REPORT INFORMATION
  Report Type: Spontaneous
  Country: NA (occurrence: NA)
  Receive Date: 20140123
  Receipt Date: 20140123
  Transmission Date: 20141002
  Serious: No
  Sender: FDA-Public Use
  Company Number: NA-JNJFOC-20140111187

PATIENT
  Age: 20 Year
  Sex: Female

DRUGS (1)
  1. DUROGESIC [Suspect]
     Indication: PRODUCT USED FOR UNKNOWN INDICATION
     Route: 062

REACTIONS (6)
  - Application site exfoliation [Unknown]
  - Wrong technique in drug usage process [Unknown]
  - Overdose [Unknown]
  - Product adhesion issue [Unknown]
  - Application site dryness [Unknown]
  - Inappropriate schedule of drug administration [Unknown]
